FAERS Safety Report 9083361 (Version 1)
Quarter: 2013Q1

REPORT INFORMATION
  Report Type: Spontaneous
  Country: US (occurrence: US)
  Receive Date: 20130130
  Receipt Date: 20130130
  Transmission Date: 20140127
  Serious: No
  Sender: FDA-Public Use
  Company Number: US-ABBOTT-12P-163-0988202-00

PATIENT
  Sex: 0

DRUGS (1)
  1. HUMIRA [Suspect]

REACTIONS (2)
  - Fatigue [Unknown]
  - Pain [Unknown]
